FAERS Safety Report 4700441-9 (Version None)
Quarter: 2005Q2

REPORT INFORMATION
  Report Type: 
  Country: None (occurrence: None)
  Receive Date: 20050627
  Receipt Date: 20050601
  Transmission Date: 20051028
  Serious: Yes (Other)
  Sender: FDA-Public Use
  Company Number: ES-BRISTOL-MYERS SQUIBB COMPANY-12991410

PATIENT
  Age: 35 Year
  Sex: Male

DRUGS (13)
  1. ACETAMINOPHEN IV [Suspect]
     Indication: PYREXIA
     Dosage: DOSE VALUE: 1 TO 2 GRAM
     Route: 042
     Dates: start: 20050503, end: 20050518
  2. TRAZODONE HCL [Suspect]
     Indication: DEPRESSION
     Dates: start: 20050515, end: 20050515
  3. POSACONAZOLE [Suspect]
     Indication: FUNGAL INFECTION
     Dosage: DOSE VALUE:  200 MG QID FROM 13-MAY-2005 TO 18-MAY-2005,THEN 800 MG DAILY STARTING 31-MAY-2005.
     Route: 048
     Dates: start: 20050513
  4. FLUOXETINE [Suspect]
     Indication: DEPRESSION
     Dosage: THERAPY START DATE:  REPORTED AS BOTH ^16-APR-2005 AND 26-APR-2005^
     Dates: start: 20050401, end: 20050518
  5. AMPHOTERICIN B [Suspect]
     Indication: FUNGAL INFECTION
     Dates: start: 20050509, end: 20050518
  6. GLEEVEC [Suspect]
     Dates: start: 20050504, end: 20050518
  7. OMEPRAZOLE [Suspect]
     Dates: start: 20050501
  8. VORICONAZOLE [Concomitant]
  9. CASPOFUNGIN ACETATE [Concomitant]
  10. VINCRISTINE [Concomitant]
     Dates: start: 20050302
  11. DAUNORUBICIN HCL [Concomitant]
     Dates: start: 20050302
  12. CYTARABINE [Concomitant]
     Dates: start: 20050302
  13. METHOTREXATE [Concomitant]
     Dates: start: 20050302

REACTIONS (4)
  - HEPATITIS TOXIC [None]
  - MITRAL VALVE INCOMPETENCE [None]
  - MUCORMYCOSIS [None]
  - PROTHROMBIN TIME ABNORMAL [None]
